FAERS Safety Report 4679719-3 (Version None)
Quarter: 2005Q2

REPORT INFORMATION
  Report Type: 
  Country: None (occurrence: None)
  Receive Date: 20050602
  Receipt Date: 20030822
  Transmission Date: 20051028
  Serious: Yes (Death, Hospitalization)
  Sender: FDA-Public Use
  Company Number: US-ABBOTT-03P-163-0230547-00

PATIENT
  Sex: Male

DRUGS (7)
  1. RITONAVIR SOFT GELATIN CAPSULES [Suspect]
     Indication: HIV INFECTION
     Route: 048
     Dates: start: 20030404, end: 20030913
  2. TIPRANAVIR [Concomitant]
     Indication: HIV INFECTION
     Route: 048
     Dates: start: 20030804, end: 20030913
  3. EFAVIRENZ [Concomitant]
     Indication: HIV INFECTION
     Route: 048
     Dates: start: 20020520, end: 20030913
  4. ATOVAQUONE [Concomitant]
     Indication: HIV INFECTION
     Route: 048
     Dates: start: 19991102, end: 20030913
  5. AZITHROMYCIN [Concomitant]
     Indication: HIV INFECTION
     Route: 048
     Dates: start: 19991102, end: 20030913
  6. TENOFOVIR [Concomitant]
     Indication: HIV INFECTION
     Route: 048
     Dates: start: 20030404, end: 20030913
  7. MULTI-VITAMINS [Concomitant]
     Indication: HIV INFECTION
     Route: 048

REACTIONS (9)
  - AUTOIMMUNE DEFICIENCY SYNDROME [None]
  - CHILLS [None]
  - DIARRHOEA [None]
  - HYPOKALAEMIA [None]
  - HYPOPHOSPHATAEMIA [None]
  - LIVER DISORDER [None]
  - MEMORY IMPAIRMENT [None]
  - MENTAL STATUS CHANGES [None]
  - PROTEIN TOTAL INCREASED [None]
